FAERS Safety Report 6764723-1 (Version None)
Quarter: 2010Q2

REPORT INFORMATION
  Report Type: 
  Country: None (occurrence: None)
  Receive Date: 20100610
  Receipt Date: 20100602
  Transmission Date: 20101027
  Serious: Yes (Life-Threatening)
  Sender: FDA-Public Use
  Company Number: CA-PFIZER INC-2010069807

PATIENT
  Age: 69 Year
  Sex: Female
  Weight: 69.841 kg

DRUGS (3)
  1. LIPITOR [Suspect]
     Dosage: 100 MG, 1X/DAY
  2. ATENOLOL [Concomitant]
     Dosage: UNK
  3. ZESTRIL [Concomitant]
     Dosage: UNK

REACTIONS (3)
  - DYSPHONIA [None]
  - RASH [None]
  - THROAT TIGHTNESS [None]
